FAERS Safety Report 20068280 (Version 1)
Quarter: 2021Q4

REPORT INFORMATION
  Report Type: Spontaneous
  Country: US (occurrence: None)
  Receive Date: 20211112
  Receipt Date: 20211112
  Transmission Date: 20220303
  Serious: Yes (Other)
  Sender: FDA-Public Use
  Company Number: None

PATIENT
  Age: 62 Year
  Sex: Male
  Weight: 106.2 kg

DRUGS (2)
  1. NEBIVOLOL [Suspect]
     Active Substance: NEBIVOLOL
     Indication: Hypertension
     Dosage: FREQUENCY : DAILY;?
     Route: 048
     Dates: start: 20211101, end: 20211112
  2. NEBIVOLOL [Concomitant]
     Active Substance: NEBIVOLOL
     Dates: start: 20211101, end: 20211112

REACTIONS (4)
  - Palpitations [None]
  - Blood pressure increased [None]
  - Feeling abnormal [None]
  - Product substitution issue [None]

NARRATIVE: CASE EVENT DATE: 20211109
